FAERS Safety Report 23592764 (Version 2)
Quarter: 2024Q1

REPORT INFORMATION
  Report Type: Spontaneous
  Country: US (occurrence: US)
  Receive Date: 20240304
  Receipt Date: 20240311
  Transmission Date: 20240409
  Serious: Yes (Death, Other)
  Sender: FDA-Public Use
  Company Number: US-JNJFOC-20240275387

PATIENT

DRUGS (2)
  1. CARVYKTI [Suspect]
     Active Substance: CILTACABTAGENE AUTOLEUCEL
     Indication: Plasma cell myeloma refractory
     Route: 065
  2. TECVAYLI [Suspect]
     Active Substance: TECLISTAMAB-CQYV
     Indication: Plasma cell myeloma refractory
     Route: 065

REACTIONS (13)
  - Immune effector cell-associated neurotoxicity syndrome [Fatal]
  - Sepsis [Fatal]
  - Cytokine release syndrome [Fatal]
  - Septic shock [Fatal]
  - Haemophagocytic lymphohistiocytosis [Fatal]
  - Pneumonia [Fatal]
  - COVID-19 [Fatal]
  - Bell^s palsy [Unknown]
  - Neurotoxicity [Unknown]
  - Infection [Unknown]
  - Parkinsonism [Unknown]
  - Pyrexia [Unknown]
  - Fatigue [Unknown]
